FAERS Safety Report 7299759-8 (Version None)
Quarter: 2011Q1

REPORT INFORMATION
  Report Type: 
  Country: None (occurrence: None)
  Receive Date: 20110208
  Receipt Date: 20110127
  Transmission Date: 20110831
  Serious: Yes (Hospitalization, Congenital Anomaly)
  Sender: FDA-Public Use
  Company Number: GER/GER/11/0017290

PATIENT
  Sex: Male
  Weight: 2.89 kg

DRUGS (7)
  1. FOLSAURE (FOLIC ACID) [Concomitant]
  2. VALPROIC ACID [Suspect]
     Indication: EPILEPSY
     Dosage: 500-500-750 (1750 MG) MG/DAY, TRANSPLACENTAL
     Route: 064
  3. VALPROIC ACID [Suspect]
     Indication: DRUG EXPOSURE DURING PREGNANCY
     Dosage: 500-500-750 (1750 MG) MG/DAY, TRANSPLACENTAL
     Route: 064
  4. LEVETIRACETAM [Suspect]
     Indication: DRUG EXPOSURE DURING PREGNANCY
     Dosage: 250 MG, 3 IN 1 D, TRANSPLACENTAL
     Route: 064
  5. LEVETIRACETAM [Suspect]
     Indication: EPILEPSY
     Dosage: 250 MG, 3 IN 1 D, TRANSPLACENTAL
     Route: 064
  6. LAMOTRIGINE [Suspect]
     Indication: DRUG EXPOSURE DURING PREGNANCY
     Dosage: 3X75+100MG (325MG) PER DAY, TRANSPLACENTAL
     Route: 064
  7. LAMOTRIGINE [Suspect]
     Indication: EPILEPSY
     Dosage: 3X75+100MG (325MG) PER DAY, TRANSPLACENTAL
     Route: 064

REACTIONS (9)
  - AGITATION NEONATAL [None]
  - NEONATAL RESPIRATORY DISTRESS SYNDROME [None]
  - HYPOTONIA NEONATAL [None]
  - CONGENITAL HAND MALFORMATION [None]
  - MATERNAL DRUGS AFFECTING FOETUS [None]
  - FEEDING DISORDER NEONATAL [None]
  - CONGENITAL NOSE MALFORMATION [None]
  - DYSMORPHISM [None]
  - LOW SET EARS [None]
